FAERS Safety Report 15370128 (Version 1)
Quarter: 2018Q3

REPORT INFORMATION
  Report Type: Report from Study
  Country: CO (occurrence: CO)
  Receive Date: 20180911
  Receipt Date: 20180911
  Transmission Date: 20181010
  Serious: Yes (Death)
  Sender: FDA-Public Use
  Company Number: PHHY2018CO092956

PATIENT
  Age: 42 Year
  Sex: Male

DRUGS (1)
  1. JADENU [Suspect]
     Active Substance: DEFERASIROX
     Indication: APLASTIC ANAEMIA
     Dosage: 900 MG, QD
     Route: 048
     Dates: start: 20180702

REACTIONS (1)
  - Death [Fatal]

NARRATIVE: CASE EVENT DATE: 20180802
